FAERS Safety Report 7722353-9 (Version None)
Quarter: 2011Q3

REPORT INFORMATION
  Report Type: 
  Country: None (occurrence: None)
  Receive Date: 20110831
  Receipt Date: 20110812
  Transmission Date: 20111222
  Serious: Yes (Life-Threatening, Hospitalization)
  Sender: FDA-Public Use
  Company Number: FR-SPECTRUM PHARMACEUTICALS, INC.-11-Z-FR-00188

PATIENT

DRUGS (6)
  1. ETOPOSIDE [Suspect]
     Dosage: UNK
     Route: 042
     Dates: start: 20081129, end: 20081204
  2. ZEVALIN [Suspect]
     Dosage: UNK UNK, SINGLE
     Route: 042
     Dates: start: 20081121, end: 20081121
  3. MABTHERA [Suspect]
     Dosage: UNK
     Route: 042
     Dates: start: 20060101, end: 20091001
  4. MELPHALAN HYDROCHLORIDE [Suspect]
     Dosage: UNK
     Route: 042
     Dates: start: 20081129, end: 20081204
  5. BICNU [Suspect]
     Dosage: UNK
     Route: 042
     Dates: start: 20081129, end: 20081204
  6. CYTARABINE [Suspect]
     Dosage: UNK
     Route: 042
     Dates: start: 20081129, end: 20081204

REACTIONS (1)
  - PROGRESSIVE MULTIFOCAL LEUKOENCEPHALOPATHY [None]
